FAERS Safety Report 13964560 (Version 3)
Quarter: 2018Q3

REPORT INFORMATION
  Report Type: Report from Study
  Country: AU (occurrence: AU)
  Receive Date: 20170913
  Receipt Date: 20180710
  Transmission Date: 20181010
  Serious: Yes (Death, Life-Threatening, Hospitalization, Other)
  Sender: FDA-Public Use
  Company Number: AU-CELGENEUS-AUS-20170404686

PATIENT
  Age: 67 Year
  Sex: Female
  Weight: 41 kg

DRUGS (41)
  1. POTASSIUM CHLORIDE. [Concomitant]
     Active Substance: POTASSIUM CHLORIDE
     Indication: ENTEROCOLITIS
     Dosage: 1200 MG
     Route: 048
     Dates: start: 20170217, end: 20170430
  2. POTASSIUM CHLORIDE. [Concomitant]
     Active Substance: POTASSIUM CHLORIDE
     Indication: PNEUMONIA
     Dosage: 1200 MG
     Route: 048
     Dates: start: 20170507, end: 20170605
  3. POTASSIUM CHLORIDE. [Concomitant]
     Active Substance: POTASSIUM CHLORIDE
     Dosage: IN 1000 ML NORMAL SALINE
     Route: 041
     Dates: start: 20170508, end: 20170508
  4. AUGMENTIN DUO FORTE [Concomitant]
     Active Substance: AMOXICILLIN\CLAVULANATE POTASSIUM
     Indication: PYREXIA
     Dosage: 2 TABLET
     Route: 048
     Dates: start: 20170417, end: 20170422
  5. OXYCODONE [Concomitant]
     Active Substance: OXYCODONE
     Indication: BACK PAIN
     Route: 048
     Dates: start: 20170105
  6. AMITRIPTYLINE [Concomitant]
     Active Substance: AMITRIPTYLINE
     Indication: INSOMNIA
     Dosage: 25 MILLIGRAM
     Route: 048
     Dates: start: 201702, end: 20170411
  7. RANITIDINE. [Concomitant]
     Active Substance: RANITIDINE
     Indication: GASTROOESOPHAGEAL REFLUX DISEASE
     Dosage: 300 MILLIGRAM
     Route: 048
     Dates: start: 20170514
  8. ANUSOL NOS [Concomitant]
     Active Substance: BALSAM PERU\BENZYL BENZOATE\BISMUTH HYDROXIDE\BISMUTH SUBGALLATE\HYDROCORTISONE ACETATE\ZINC OXIDE
     Indication: HAEMORRHOIDS
     Dosage: 2 OTHER
     Route: 061
     Dates: start: 20170208
  9. CALCIUM COLECALCIFEROL [Concomitant]
     Indication: OSTEOPOROSIS
     Dosage: 1 TABLET
     Route: 048
     Dates: start: 20161220
  10. POTASSIUM CHLORIDE. [Concomitant]
     Active Substance: POTASSIUM CHLORIDE
     Dosage: 2400 MILLIGRAM
     Route: 048
     Dates: start: 20170504, end: 20170506
  11. POTASSIUM CHLORIDE. [Concomitant]
     Active Substance: POTASSIUM CHLORIDE
     Dosage: IN 1000 ML NORMAL SALINE
     Route: 041
     Dates: start: 20170502, end: 20170503
  12. POTASSIUM CHLORIDE. [Concomitant]
     Active Substance: POTASSIUM CHLORIDE
     Dosage: IN 800 ML
     Route: 041
     Dates: start: 20170605, end: 20170605
  13. MYLANTA ALUMINIUM HYDROXIDE WITH MAGNESIUM HYDROXIDE [Concomitant]
     Indication: GASTROOESOPHAGEAL REFLUX DISEASE
     Route: 048
     Dates: start: 20170507, end: 20170514
  14. CITRAZINE [Concomitant]
     Indication: PLATELET TRANSFUSION
     Route: 048
     Dates: start: 20170603
  15. FAMCICLOVIR. [Concomitant]
     Active Substance: FAMCICLOVIR
     Indication: ANTIVIRAL PROPHYLAXIS
     Dosage: 1000 MG
     Route: 048
     Dates: start: 201512
  16. PANTOPRAZOLE [Concomitant]
     Active Substance: PANTOPRAZOLE
     Indication: GASTRITIS PROPHYLAXIS
     Dosage: 40 MG
     Route: 048
     Dates: start: 201512, end: 20170513
  17. POSACONAZOLE [Concomitant]
     Active Substance: POSACONAZOLE
     Indication: ANTIFUNGAL PROPHYLAXIS
     Dosage: 300 MILLIGRAM
     Route: 048
     Dates: start: 20170420
  18. CALCIUM COLECALCIFEROL [Concomitant]
     Dosage: 1.2 GRAM
     Route: 048
     Dates: start: 20170504, end: 20170516
  19. POTASSIUM CHLORIDE. [Concomitant]
     Active Substance: POTASSIUM CHLORIDE
     Indication: PROPHYLAXIS
     Dosage: 4 TABLET
     Route: 048
  20. POTASSIUM CHLORIDE. [Concomitant]
     Active Substance: POTASSIUM CHLORIDE
     Dosage: IN 200 ML IN NORMAL SALINE
     Route: 041
     Dates: start: 20170609, end: 20170609
  21. MYLANTA ALUMINIUM HYDROXIDE WITH MAGNESIUM HYDROXIDE [Concomitant]
     Route: 048
     Dates: start: 20170602, end: 20170602
  22. VORICONAZOLE. [Concomitant]
     Active Substance: VORICONAZOLE
     Indication: ANTIFUNGAL PROPHYLAXIS
     Dosage: 750 MG
     Route: 048
     Dates: start: 20170407, end: 20170412
  23. POSACONAZOLE [Concomitant]
     Active Substance: POSACONAZOLE
     Dosage: 300 MILLIGRAM
     Route: 048
     Dates: start: 20170509
  24. MAGNESIUM ASPARTATE [Concomitant]
     Active Substance: MAGNESIUM ASPARTATE
     Indication: PROPHYLAXIS
     Dosage: 1500 MILLIGRAM
     Route: 048
     Dates: start: 20170219
  25. RISEDRONATE [Concomitant]
     Active Substance: RISEDRONATE SODIUM
     Indication: OSTEOPOROSIS
     Dosage: 5 MILLIGRAM
     Route: 065
  26. PARACETAMOL [Concomitant]
     Active Substance: ACETAMINOPHEN
     Indication: LUNG INFECTION
     Route: 048
     Dates: start: 20161218
  27. POTASSIUM CHLORIDE. [Concomitant]
     Active Substance: POTASSIUM CHLORIDE
     Dosage: 3600 MILLIGRAM
     Route: 048
     Dates: start: 20170507, end: 20170511
  28. POTASSIUM CHLORIDE. [Concomitant]
     Active Substance: POTASSIUM CHLORIDE
     Dosage: IN 100 ML NORMAL SALINE
     Route: 041
     Dates: start: 20170504, end: 20170505
  29. POTASSIUM CHLORIDE. [Concomitant]
     Active Substance: POTASSIUM CHLORIDE
     Dosage: IN 100 ML NORMAL SALINE
     Route: 041
     Dates: start: 20170506, end: 20170506
  30. POTASSIUM CHLORIDE. [Concomitant]
     Active Substance: POTASSIUM CHLORIDE
     Dosage: 2400 MILLIGRAM
     Route: 048
     Dates: start: 20170618
  31. MAGNESIUM ASPARTATE [Concomitant]
     Active Substance: MAGNESIUM ASPARTATE
     Dosage: 500 MILLIGRAM
     Route: 048
     Dates: start: 20170511, end: 20170516
  32. MAGNESIUM ASPARTATE [Concomitant]
     Active Substance: MAGNESIUM ASPARTATE
     Dosage: 1000 MILLIGRAM
     Route: 048
     Dates: start: 20170604
  33. AG?221 [Suspect]
     Active Substance: ENASIDENIB
     Dosage: 100 MILLIGRAM
     Route: 048
     Dates: start: 20170622, end: 20170624
  34. POTASSIUM CHLORIDE. [Concomitant]
     Active Substance: POTASSIUM CHLORIDE
     Dosage: IN 300 ML NORMAL SALINE
     Route: 041
     Dates: start: 20170503, end: 20170505
  35. OXYCODONE [Concomitant]
     Active Substance: OXYCODONE
     Indication: PNEUMONIA
  36. TEMAZEPAM. [Concomitant]
     Active Substance: TEMAZEPAM
     Indication: INSOMNIA
     Route: 048
  37. FEXOFENADINE [Concomitant]
     Active Substance: FEXOFENADINE\FEXOFENADINE HYDROCHLORIDE
     Indication: PLATELET TRANSFUSION
     Dosage: 180 MILLIGRAM
     Route: 048
     Dates: start: 20170601, end: 20170601
  38. AG?221 [Suspect]
     Active Substance: ENASIDENIB
     Indication: ACUTE MYELOID LEUKAEMIA
     Dosage: 200 MG
     Route: 048
     Dates: start: 20161221, end: 20170508
  39. POTASSIUM CHLORIDE. [Concomitant]
     Active Substance: POTASSIUM CHLORIDE
     Dosage: 1200 MILLIGRAM
     Route: 048
     Dates: start: 20170501, end: 20170503
  40. POTASSIUM CHLORIDE. [Concomitant]
     Active Substance: POTASSIUM CHLORIDE
     Dosage: 3600 MILLIGRAM
     Route: 048
     Dates: start: 20170606, end: 20170617
  41. MAGNESIUM ASPARTATE [Concomitant]
     Active Substance: MAGNESIUM ASPARTATE
     Dosage: 1500 MILLIGRAM
     Route: 048
     Dates: start: 20170220

REACTIONS (6)
  - Pneumonia legionella [Fatal]
  - Pneumonia [Recovered/Resolved]
  - Periorbital cellulitis [Recovered/Resolved]
  - Pneumonia [Recovered/Resolved]
  - Clostridium difficile colitis [Recovered/Resolved]
  - Pyrexia [Recovered/Resolved]

NARRATIVE: CASE EVENT DATE: 20170412
